FAERS Safety Report 7215892-0 (Version None)
Quarter: 2011Q1

REPORT INFORMATION
  Report Type: 
  Country: None (occurrence: None)
  Receive Date: 20110104
  Receipt Date: 20110104
  Transmission Date: 20110831
  Serious: No
  Sender: FDA-Public Use
  Company Number: None

PATIENT
  Age: 32 Year
  Sex: Female
  Weight: 49.8957 kg

DRUGS (4)
  1. TAMIFLU [Concomitant]
  2. LEVAQUIN [Suspect]
     Indication: PNEUMONIA
     Dosage: 500 QDAY PO
     Route: 048
     Dates: start: 20101226, end: 20101231
  3. ZITHROMAX [Concomitant]
  4. CEFTRIAXONE [Concomitant]

REACTIONS (2)
  - TENDONITIS [None]
  - ARTHRALGIA [None]
